FAERS Safety Report 15325541 (Version 5)
Quarter: 2020Q1

REPORT INFORMATION
  Report Type: Spontaneous
  Country: US (occurrence: US)
  Receive Date: 20180828
  Receipt Date: 20200129
  Transmission Date: 20200409
  Serious: Yes (Hospitalization, Other)
  Sender: FDA-Public Use
  Company Number: US-PFIZER INC-2018343957

PATIENT
  Age: 60 Year
  Sex: Male

DRUGS (1)
  1. LYRICA [Suspect]
     Active Substance: PREGABALIN
     Indication: DRUG THERAPY
     Dosage: 150 MG, 2X/DAY
     Route: 048

REACTIONS (6)
  - Pain [Unknown]
  - Drug withdrawal syndrome [Unknown]
  - Malaise [Unknown]
  - Infection [Unknown]
  - Dysphonia [Unknown]
  - Asthenia [Unknown]
